FAERS Safety Report 23059421 (Version 2)
Quarter: 2023Q4

REPORT INFORMATION
  Report Type: Spontaneous
  Country: CZ (occurrence: CZ)
  Receive Date: 20231012
  Receipt Date: 20231214
  Transmission Date: 20240109
  Serious: Yes (Other)
  Sender: FDA-Public Use
  Company Number: CZ-TEVA-2023-CZ-2932711

PATIENT
  Age: 68 Year

DRUGS (6)
  1. OXALIPLATIN [Suspect]
     Active Substance: OXALIPLATIN
     Indication: Adenocarcinoma gastric
     Dosage: DOSAGE TEXT: 4 CYCLES IN FRAME OF MFOLFOX6
     Route: 065
     Dates: start: 202301, end: 2023
  2. NIVOLUMAB [Concomitant]
     Active Substance: NIVOLUMAB
     Indication: Adenocarcinoma gastric
     Dosage: DOSAGE TEXT: MFOLFOX6 FROM 3RD CYCLE
     Route: 065
     Dates: start: 2023
  3. NIVOLUMAB [Concomitant]
     Active Substance: NIVOLUMAB
     Indication: Adenocarcinoma gastric
     Dosage: DOSAGE TEXT: COMBINING FUFA WITH NIVOLUMAB
     Route: 065
     Dates: start: 2023
  4. LEUCOVORIN [Suspect]
     Active Substance: LEUCOVORIN\LEUCOVORIN CALCIUM
     Indication: Adenocarcinoma gastric
     Dosage: DOSAGE TEXT: 8 CYCLES IN FRAME OF MFOLFOX6
     Route: 065
     Dates: start: 202301, end: 2023
  5. Tramal gtt [Concomitant]
     Indication: Arthralgia
     Route: 065
  6. FENOTEROL HYDROBROMIDE\IPRATROPIUM BROMIDE [Concomitant]
     Active Substance: FENOTEROL HYDROBROMIDE\IPRATROPIUM BROMIDE
     Indication: Product used for unknown indication
     Route: 065

REACTIONS (6)
  - Peripheral motor neuropathy [Recovered/Resolved with Sequelae]
  - Dyspepsia [Recovered/Resolved]
  - Decreased appetite [Recovered/Resolved]
  - Neurotoxicity [Recovered/Resolved]
  - Peripheral sensory neuropathy [Recovered/Resolved with Sequelae]
  - Gastrointestinal toxicity [Recovered/Resolved]

NARRATIVE: CASE EVENT DATE: 20230101
